FAERS Safety Report 16668585 (Version 8)
Quarter: 2020Q2

REPORT INFORMATION
  Report Type: Spontaneous
  Country: US (occurrence: US)
  Receive Date: 20190805
  Receipt Date: 20200511
  Transmission Date: 20200713
  Serious: Yes (Hospitalization, Other)
  Sender: FDA-Public Use
  Company Number: US-PFIZER INC-2019181428

PATIENT
  Age: 74 Year
  Sex: Female
  Weight: 72 kg

DRUGS (6)
  1. LYRICA [Suspect]
     Active Substance: PREGABALIN
     Indication: PAIN IN EXTREMITY
     Dosage: 375 MG, DAILY (1 CAP ORAL 5 TIMES PER DAY FOR 90 DAYS)
     Route: 048
     Dates: start: 2014
  2. IBUPROFEN. [Concomitant]
     Active Substance: IBUPROFEN
     Dosage: UNK (WITH THE AFTERNOON DOSES)
  3. LYRICA [Suspect]
     Active Substance: PREGABALIN
     Indication: NEUROPATHY PERIPHERAL
  4. LYRICA [Suspect]
     Active Substance: PREGABALIN
     Indication: HYPOAESTHESIA
  5. LYRICA [Suspect]
     Active Substance: PREGABALIN
     Indication: PARAESTHESIA
     Dosage: 75 MG, 4X/DAY (75 MG, DAILY (FOUR TIMES A DAY))
     Route: 048
  6. LYRICA [Suspect]
     Active Substance: PREGABALIN
     Indication: SPONDYLITIS
     Dosage: 75 MG, 4X/DAY (75MG 1 CAPSULE BY MOUTH FOUR TIMES DAILY)
     Route: 048
     Dates: start: 2015, end: 201907

REACTIONS (6)
  - Feeling abnormal [Unknown]
  - Body height decreased [Unknown]
  - Therapeutic product effect incomplete [Unknown]
  - Drug dependence [Unknown]
  - Intentional product use issue [Unknown]
  - Malaise [Unknown]
